FAERS Safety Report 7802809-0 (Version None)
Quarter: 2011Q4

REPORT INFORMATION
  Report Type: 
  Country: None (occurrence: None)
  Receive Date: 20111007
  Receipt Date: 20110927
  Transmission Date: 20120403
  Serious: Yes (Life-Threatening, Hospitalization)
  Sender: FDA-Public Use
  Company Number: CM-MERCK-1109USA03107

PATIENT
  Age: 43 Year
  Sex: Male

DRUGS (4)
  1. STROMECTOL [Suspect]
     Indication: ONCHOCERCIASIS
     Route: 048
     Dates: start: 20110819, end: 20110819
  2. ALBENDAZOLE [Suspect]
     Indication: FILARIASIS LYMPHATIC
     Route: 048
     Dates: start: 20110819, end: 20110819
  3. STROMECTOL [Suspect]
     Indication: FILARIASIS LYMPHATIC
     Route: 048
     Dates: start: 20110819, end: 20110819
  4. ALBENDAZOLE [Suspect]
     Indication: ONCHOCERCIASIS
     Route: 048
     Dates: start: 20110819, end: 20110819

REACTIONS (11)
  - ABNORMAL BEHAVIOUR [None]
  - VERTIGO [None]
  - HICCUPS [None]
  - ENCEPHALOPATHY [None]
  - ASTHENIA [None]
  - SOMNOLENCE [None]
  - DIARRHOEA [None]
  - PYREXIA [None]
  - CONJUNCTIVAL HAEMORRHAGE [None]
  - DRUG INTERACTION [None]
  - URINARY INCONTINENCE [None]
